FAERS Safety Report 17051391 (Version 1)
Quarter: 2019Q4

REPORT INFORMATION
  Report Type: Other
  Country: DE (occurrence: DE)
  Receive Date: 20191120
  Receipt Date: 20191120
  Transmission Date: 20200122
  Serious: Yes (Life-Threatening, Hospitalization, Other)
  Sender: FDA-Public Use
  Company Number: DE-CELLTRION INC.-2019DE026491

PATIENT

DRUGS (39)
  1. RITUXIMAB (UNKNOWN) [Suspect]
     Active Substance: RITUXIMAB
     Dosage: 660 MG, (INFUSION RATE 3.7 ML/MIN FROM 08:50 TO 11:50)
     Route: 041
     Dates: start: 20190124, end: 20190124
  2. RITUXIMAB (UNKNOWN) [Suspect]
     Active Substance: RITUXIMAB
     Dosage: 667 MG, (INFUSION RATE 3.8 ML/MIN FROM 09:10 TO 12:05)
     Route: 041
     Dates: start: 20190313
  3. PREDNISONE. [Suspect]
     Active Substance: PREDNISONE
     Dosage: 500 MG
     Route: 048
     Dates: start: 20190103, end: 20190213
  4. CYCLOPHOSPHAMIDE. [Suspect]
     Active Substance: CYCLOPHOSPHAMIDE
     Dosage: 356 MG, (INFUSION RATE 6.25 ML/MIN FROM 09:55 TO 11:15)
     Route: 041
     Dates: start: 20190125, end: 20190125
  5. MOVICOL [Concomitant]
     Active Substance: POLYETHYLENE GLYCOL 3350\POTASSIUM CHLORIDE\SODIUM BICARBONATE\SODIUM CHLORIDE
     Indication: PROPHYLAXIS
     Dosage: UNK
     Route: 048
     Dates: start: 20181122
  6. VALSARTAN. [Concomitant]
     Active Substance: VALSARTAN
     Indication: HYPERTENSION
     Dosage: 80 MG
     Route: 048
  7. RITUXIMAB (UNKNOWN) [Suspect]
     Active Substance: RITUXIMAB
     Dosage: 660 MG, (INFUSION RATE 3.7 ML/MIN FROM 09:55 TO 12:55
     Route: 041
     Dates: start: 20190102, end: 20190102
  8. DOXORUBICIN [Suspect]
     Active Substance: DOXORUBICIN
     Dosage: 22.5 MG, (INFUSION RATE 5.0 ML/MIN FROM 09:10 TO 09:30)
     Route: 041
     Dates: start: 20190125, end: 20190125
  9. CYCLOPHOSPHAMIDE. [Suspect]
     Active Substance: CYCLOPHOSPHAMIDE
     Dosage: 358 MG, (INFUSION RATE 7.7 ML/MIN FROM 10:25 TO 11:30)
     Route: 041
     Dates: start: 20190103, end: 20190103
  10. VINCRISTINE [Suspect]
     Active Substance: VINCRISTINE
     Indication: DIFFUSE LARGE B-CELL LYMPHOMA
     Dosage: 1 MG, (INFUSION RATE 0.5 ML/MIN FROM 08:45 TO 08:47)
     Route: 041
     Dates: start: 20190125, end: 20190125
  11. VINCRISTINE [Suspect]
     Active Substance: VINCRISTINE
     Dosage: 1 MG, (INFUSION RATE 0.2 ML/MIN FROM 08:40 TO 08:45)
     Route: 041
     Dates: start: 20181213, end: 20181213
  12. LERCANIDIPINE [Concomitant]
     Active Substance: LERCANIDIPINE
     Indication: HYPERTENSION
     Dosage: 20 MG
     Route: 048
     Dates: start: 20180212
  13. TORASEMID [Concomitant]
     Active Substance: TORSEMIDE
     Indication: CARDIAC FAILURE
     Dosage: 5 MG
     Route: 048
  14. RITUXIMAB (UNKNOWN) [Suspect]
     Active Substance: RITUXIMAB
     Dosage: 670 MG, (INFUSION RATE 2.8 ML/MIN FROM 09:30 TO 13:30)
     Route: 041
     Dates: start: 20181212, end: 20181212
  15. CYCLOPHOSPHAMIDE. [Suspect]
     Active Substance: CYCLOPHOSPHAMIDE
     Dosage: 358 MG, (INFUSION RATE 8.3 ML/MIN FROM 09:45 TO 10:45)
     Route: 041
     Dates: start: 20181213, end: 20181213
  16. COTRIM FORTE [Concomitant]
     Active Substance: SULFAMETHOXAZOLE\TRIMETHOPRIM
     Indication: PROPHYLAXIS
     Dosage: 960 MG
     Route: 048
     Dates: start: 20181024
  17. RITUXIMAB (UNKNOWN) [Suspect]
     Active Substance: RITUXIMAB
     Dosage: 667 MG, (INFUSION RATE 3.8 ML/MIN FROM 09:10 TO 12:05)
     Route: 041
     Dates: start: 20190313
  18. VINCRISTINE [Suspect]
     Active Substance: VINCRISTINE
     Dosage: 1 MG, (INFUSION RATE 0.2 ML/MIN FROM 09:20 TO 09:25)
     Route: 041
     Dates: start: 20190103, end: 20190103
  19. AMPHO MORONAL [Concomitant]
     Active Substance: AMPHOTERICIN B
     Indication: PROPHYLAXIS
     Dosage: UNK
     Route: 048
     Dates: start: 20181024
  20. NEULASTA [Concomitant]
     Active Substance: PEGFILGRASTIM
     Indication: PRODUCT USED FOR UNKNOWN INDICATION
     Dosage: 6 MG
     Route: 058
     Dates: start: 20181104
  21. RITUXIMAB (UNKNOWN) [Suspect]
     Active Substance: RITUXIMAB
     Dosage: 670 MG, (INFUSION RATE 2.8 ML/MIN FROM 09:30 TO 13:30)
     Route: 041
     Dates: start: 20181030, end: 20181030
  22. PREDNISONE. [Suspect]
     Active Substance: PREDNISONE
     Dosage: 500 MG
     Route: 048
     Dates: start: 20181213
  23. DOXORUBICIN [Suspect]
     Active Substance: DOXORUBICIN
     Indication: DIFFUSE LARGE B-CELL LYMPHOMA
     Dosage: 45 MG, (INFUSION RATE 5.0 ML/MIN FROM 09:35 TO 09:55
     Route: 041
     Dates: start: 20181031, end: 20181031
  24. VINCRISTINE [Suspect]
     Active Substance: VINCRISTINE
     Dosage: 1 MG, (INFUSION RATE 0.5 ML/MIN FROM 10:15 TO 10:17)
     Route: 041
     Dates: start: 20181024, end: 20181024
  25. DEKRISTOL [Concomitant]
     Active Substance: CHOLECALCIFEROL
     Indication: VITAMIN D DEFICIENCY
     Dosage: UNK
     Route: 048
     Dates: start: 20181015
  26. RITUXIMAB (UNKNOWN) [Suspect]
     Active Substance: RITUXIMAB
     Dosage: 660 MG, (INFUSION RATE 3.7 ML/MIN FROM 08:50 TO 11:50)
     Route: 041
     Dates: start: 20190124, end: 20190124
  27. RITUXIMAB (UNKNOWN) [Suspect]
     Active Substance: RITUXIMAB
     Dosage: 660 MG, (INFUSION RATE 3.8 ML/MIN FROM 09:10 TO 12:05)
     Route: 041
     Dates: start: 20190213, end: 20190213
  28. PREDNISONE. [Suspect]
     Active Substance: PREDNISONE
     Indication: DIFFUSE LARGE B-CELL LYMPHOMA
     Dosage: 500 MG
     Route: 048
     Dates: start: 20181024, end: 20181028
  29. PREDNISONE. [Suspect]
     Active Substance: PREDNISONE
     Dosage: 500 MG
     Route: 048
     Dates: start: 20190125, end: 20190129
  30. PREDNISONE. [Suspect]
     Active Substance: PREDNISONE
     Dosage: 4 MG
     Route: 048
     Dates: start: 20190313, end: 20190313
  31. DOXORUBICIN [Suspect]
     Active Substance: DOXORUBICIN
     Dosage: 22.5 MG, (INFUSION RATE 5.0 ML/MIN FROM 09:40 TO 10:00)
     Route: 041
     Dates: start: 20190103, end: 20190103
  32. CYCLOPHOSPHAMIDE. [Suspect]
     Active Substance: CYCLOPHOSPHAMIDE
     Indication: DIFFUSE LARGE B-CELL LYMPHOMA
     Dosage: 716 MG, (INFUSION RATE 4.0 ML/MIN FROM 10:10 TO 12:15
     Route: 041
     Dates: start: 20181031, end: 20181031
  33. FOLSAEURE [Concomitant]
     Active Substance: FOLIC ACID
     Indication: PROPHYLAXIS
     Dosage: 5 MG
     Route: 048
     Dates: start: 20181024
  34. APIXABAN [Concomitant]
     Active Substance: APIXABAN
     Indication: ARRHYTHMIA
     Route: 048
  35. RITUXIMAB (UNKNOWN) [Suspect]
     Active Substance: RITUXIMAB
     Indication: DIFFUSE LARGE B-CELL LYMPHOMA
     Dosage: 670 MG, (INFUSION RATE 2.8 ML/MIN FROM 09:30 TO 13:30)
     Route: 041
     Dates: start: 20181030, end: 20181030
  36. RITUXIMAB (UNKNOWN) [Suspect]
     Active Substance: RITUXIMAB
     Dosage: 670 MG, (INFUSION RATE 2.8 ML/MIN FROM 09:30 TO 13:30)
     Route: 041
     Dates: start: 20181212, end: 20181212
  37. PREDNISONE. [Suspect]
     Active Substance: PREDNISONE
     Dosage: 4 MG
     Route: 048
     Dates: start: 20190213, end: 20190213
  38. DOXORUBICIN [Suspect]
     Active Substance: DOXORUBICIN
     Dosage: 22.5 MG, (INFUSION RATE 6.6 ML/MIN FROM 09:00 TO 09:15)
     Route: 041
     Dates: start: 20181213, end: 20181213
  39. METOPROLOL. [Concomitant]
     Active Substance: METOPROLOL
     Indication: HYPERTENSION
     Dosage: 23.75 MG
     Route: 048

REACTIONS (18)
  - Body temperature increased [Recovered/Resolved]
  - Feeling hot [Recovered/Resolved]
  - Pancytopenia [Unknown]
  - Dysphagia [Recovered/Resolved]
  - Serum ferritin increased [Not Recovered/Not Resolved]
  - Oesophageal candidiasis [Recovered/Resolved]
  - Platelet count decreased [Recovered/Resolved]
  - Blood lactate dehydrogenase increased [Not Recovered/Not Resolved]
  - Muscular weakness [Recovered/Resolved]
  - Blood potassium increased [Recovered/Resolved]
  - Anaemia [Recovered/Resolved]
  - Gamma-glutamyltransferase increased [Not Recovered/Not Resolved]
  - Reticulocyte count increased [Not Recovered/Not Resolved]
  - Decreased appetite [Recovered/Resolved]
  - Dysgeusia [Not Recovered/Not Resolved]
  - C-reactive protein increased [Not Recovered/Not Resolved]
  - White blood cell count decreased [Recovered/Resolved]
  - Blood creatinine increased [Not Recovered/Not Resolved]

NARRATIVE: CASE EVENT DATE: 20181029
